FAERS Safety Report 7344918-9 (Version None)
Quarter: 2011Q1

REPORT INFORMATION
  Report Type: 
  Country: None (occurrence: None)
  Receive Date: 20110310
  Receipt Date: 20110301
  Transmission Date: 20110831
  Serious: Yes (Other)
  Sender: FDA-Public Use
  Company Number: CN-ASTRAZENECA-2011SE11350

PATIENT
  Age: 55 Year
  Sex: Female

DRUGS (2)
  1. ZOLPIDEM [Concomitant]
     Indication: MENTAL DISORDER
     Route: 048
  2. QUETIAPINE [Suspect]
     Indication: MENTAL DISORDER
     Route: 048

REACTIONS (7)
  - APHASIA [None]
  - NEUROLEPTIC MALIGNANT SYNDROME [None]
  - HYPERHIDROSIS [None]
  - DELIRIUM [None]
  - MYOTONIA [None]
  - DYSPHAGIA [None]
  - CONVULSION [None]
